FAERS Safety Report 25590494 (Version 6)
Quarter: 2025Q3

REPORT INFORMATION
  Report Type: Spontaneous
  Country: US (occurrence: US)
  Receive Date: 20250722
  Receipt Date: 20250918
  Transmission Date: 20251021
  Serious: Yes (Death, Hospitalization, Other)
  Sender: PFIZER
  Company Number: US-PFIZER INC-202500146459

PATIENT
  Age: 33 Year
  Sex: Female
  Weight: 61.23 kg

DRUGS (4)
  1. BRAFTOVI [Suspect]
     Active Substance: ENCORAFENIB
     Indication: Colorectal cancer metastatic
     Dosage: 300 MG, 1X/DAY(TAKE FOUR TABLETS)
     Route: 048
     Dates: start: 202506, end: 20250719
  2. BRAFTOVI [Suspect]
     Active Substance: ENCORAFENIB
     Dosage: 300 MG, 1X/DAY(TAKE FOUR TABLETS)
     Route: 048
     Dates: start: 20250720
  3. BRAFTOVI [Suspect]
     Active Substance: ENCORAFENIB
     Dosage: 225 MG, 1X/DAY (REDUCE THE DOSE TO 3 PILLS)
     Route: 048
  4. CETUXIMAB [Concomitant]
     Active Substance: CETUXIMAB
     Indication: Colorectal cancer stage IV

REACTIONS (10)
  - Accidental overdose [Fatal]
  - Arthralgia [Fatal]
  - Dysstasia [Fatal]
  - Haemoptysis [Fatal]
  - Bronchitis [Fatal]
  - Tachycardia [Fatal]
  - Chromaturia [Fatal]
  - Urinary retention [Fatal]
  - Blood potassium decreased [Fatal]
  - Death [Fatal]

NARRATIVE: CASE EVENT DATE: 20250620
